FAERS Safety Report 4469572-5 (Version None)
Quarter: 2004Q4

REPORT INFORMATION
  Report Type: 
  Country: None (occurrence: None)
  Receive Date: 20041005
  Receipt Date: 20041005
  Transmission Date: 20050328
  Serious: Yes (Hospitalization)
  Sender: FDA-Public Use
  Company Number: None

PATIENT
  Sex: Male

DRUGS (19)
  1. LISINOPRIL [Suspect]
     Indication: HYPERTENSION
     Dosage: 5 MG   DAILY   ORAL
     Route: 048
  2. ALBUTEROL [Concomitant]
  3. CALCIUM ACETATE [Concomitant]
  4. CITALOPRAM [Concomitant]
  5. DOCUSATE [Concomitant]
  6. DONEPAZIL [Concomitant]
  7. EPOGEN [Concomitant]
  8. FELODIPINE [Concomitant]
  9. FOLIC ACID [Concomitant]
  10. HYDRALAZINE HCL [Concomitant]
  11. INSULIN [Concomitant]
  12. IPRATROPIUM BROMIDE [Concomitant]
  13. ISDN{ METOPROLOL [Concomitant]
  14. OMERPAZOLE [Concomitant]
  15. RISPERIDONE [Concomitant]
  16. SENNA [Concomitant]
  17. TERAZOSIN HCL [Concomitant]
  18. THIAMINE [Concomitant]
  19. VIT E [Concomitant]

REACTIONS (1)
  - HYPERKALAEMIA [None]
